FAERS Safety Report 17961413 (Version 2)
Quarter: 2021Q3

REPORT INFORMATION
  Report Type: Spontaneous
  Country: US (occurrence: US)
  Receive Date: 20200629
  Receipt Date: 20210728
  Transmission Date: 20211014
  Serious: No
  Sender: FDA-Public Use
  Company Number: US-ROCHE-2542186

PATIENT
  Age: 61 Year
  Sex: Male

DRUGS (1)
  1. XELODA [Suspect]
     Active Substance: CAPECITABINE
     Indication: RECTAL CANCER
     Route: 048
     Dates: start: 20200115

REACTIONS (3)
  - Palmar-plantar erythrodysaesthesia syndrome [Unknown]
  - Arthralgia [Unknown]
  - Skin discolouration [Unknown]

NARRATIVE: CASE EVENT DATE: 20200129
